FAERS Safety Report 24459088 (Version 1)
Quarter: 2024Q4

REPORT INFORMATION
  Report Type: Spontaneous
  Country: CN (occurrence: CN)
  Receive Date: 20241018
  Receipt Date: 20241018
  Transmission Date: 20250114
  Serious: No
  Sender: ROCHE
  Company Number: CN-ROCHE-3526529

PATIENT
  Age: 71 Year
  Sex: Male

DRUGS (20)
  1. MABTHERA [Suspect]
     Active Substance: RITUXIMAB
     Indication: Diffuse large B-cell lymphoma
     Dosage: RECENT DOSE: 19/SEP/2022, 12/OCT/2022, 01/NOV/2022
     Route: 065
     Dates: start: 20220826
  2. MABTHERA [Suspect]
     Active Substance: RITUXIMAB
     Dosage: RGDP
     Route: 065
     Dates: start: 20221125
  3. MABTHERA [Suspect]
     Active Substance: RITUXIMAB
     Dosage: RECENT DOSE: /OCT/2023, POLA + RCHP
     Route: 065
     Dates: start: 202309
  4. MABTHERA [Suspect]
     Active Substance: RITUXIMAB
     Dosage: POLA+BR, D1 OF EACH CYCLE
     Route: 065
  5. MABTHERA [Suspect]
     Active Substance: RITUXIMAB
     Dosage: BR, D1 OF EACH CYCLE
     Route: 065
  6. GAZYVA [Suspect]
     Active Substance: OBINUTUZUMAB
     Indication: Diffuse large B-cell lymphoma
     Route: 065
     Dates: start: 202311
  7. POLATUZUMAB VEDOTIN [Concomitant]
     Active Substance: POLATUZUMAB VEDOTIN
     Indication: Diffuse large B-cell lymphoma
     Dosage: RECENT DOSE: OCT/2023, POLA+RCHP
     Route: 065
     Dates: start: 202309
  8. POLATUZUMAB VEDOTIN [Concomitant]
     Active Substance: POLATUZUMAB VEDOTIN
     Route: 065
     Dates: start: 202311
  9. POLATUZUMAB VEDOTIN [Concomitant]
     Active Substance: POLATUZUMAB VEDOTIN
     Dosage: POLA+BR, CYCLE 1 D2, AND D1 OF CYCLES 2-6 THEREAFTER
  10. CYCLOPHOSPHAMIDE [Concomitant]
     Active Substance: CYCLOPHOSPHAMIDE
     Indication: Diffuse large B-cell lymphoma
     Dosage: RECENT DOSE: 19-SEP-2022, 12-OCT-2022, 01-NOV-2022
     Dates: start: 20220826
  11. CYCLOPHOSPHAMIDE [Concomitant]
     Active Substance: CYCLOPHOSPHAMIDE
     Dosage: RECENT DOSE:  OCT/2023, POLA + RCHP
     Dates: start: 202309
  12. VINCRISTINE [Concomitant]
     Active Substance: VINCRISTINE
     Indication: Diffuse large B-cell lymphoma
     Dosage: RECENT DOSE: 19-SEP-2022, 12-OCT-2022, 01-NOV-2022
     Dates: start: 20220826
  13. PREDNISONE [Concomitant]
     Active Substance: PREDNISONE
     Indication: Diffuse large B-cell lymphoma
     Dosage: RECENT DOSE: 19-SEP-2022, 12-OCT-2022, 01-NOV-2022
     Dates: start: 20220826
  14. PREDNISONE [Concomitant]
     Active Substance: PREDNISONE
     Dosage: RECENT DOSE: OCT/2023, POLA + RCHP
     Dates: start: 202309
  15. GEMCITABINE [Concomitant]
     Active Substance: GEMCITABINE
     Indication: Diffuse large B-cell lymphoma
     Dosage: RGDP
     Dates: start: 20221125
  16. CISPLATIN [Concomitant]
     Active Substance: CISPLATIN
     Indication: Diffuse large B-cell lymphoma
     Dosage: RGDP
     Dates: start: 20221125
  17. DEXAMETHASONE [Concomitant]
     Active Substance: DEXAMETHASONE
     Indication: Diffuse large B-cell lymphoma
     Dosage: RGDP
     Dates: start: 20221125
  18. DOXORUBICIN [Concomitant]
     Active Substance: DOXORUBICIN
     Indication: Diffuse large B-cell lymphoma
     Dosage: RECENT DOSE: OCT/2023, POLA+RCHP
     Dates: start: 202309
  19. BENDAMUSTINE [Concomitant]
     Active Substance: BENDAMUSTINE
     Indication: Diffuse large B-cell lymphoma
     Dosage: POLA+BR, D2, 3 IN CYCLE 1, THEN D1, D2 IN EACH SUBSEQUENT CYCLE
  20. BENDAMUSTINE [Concomitant]
     Active Substance: BENDAMUSTINE
     Dosage: BR, D2, 3 IN CYCLE 1, THEN D1, D2 IN EACH SUBSEQUENT CYCLE

REACTIONS (2)
  - Off label use [Unknown]
  - COVID-19 [Unknown]
